FAERS Safety Report 13059386 (Version 1)
Quarter: 2016Q4

REPORT INFORMATION
  Report Type: Spontaneous
  Country: HU (occurrence: HU)
  Receive Date: 20161223
  Receipt Date: 20161223
  Transmission Date: 20170207
  Serious: Yes (Other)
  Sender: FDA-Public Use
  Company Number: PHHY2016HU166805

PATIENT
  Age: 48 Year
  Sex: Female

DRUGS (15)
  1. HYCAMTIN [Suspect]
     Active Substance: TOPOTECAN HYDROCHLORIDE
     Indication: OVARIAN EPITHELIAL CANCER METASTATIC
     Route: 065
  2. CYCLOPHOSPHAMIDE. [Suspect]
     Active Substance: CYCLOPHOSPHAMIDE
     Indication: OVARIAN EPITHELIAL CANCER METASTATIC
     Route: 065
  3. GEMZAR [Suspect]
     Active Substance: GEMCITABINE HYDROCHLORIDE
     Indication: OVARIAN EPITHELIAL CANCER METASTATIC
     Route: 065
  4. VEPESID [Suspect]
     Active Substance: ETOPOSIDE
     Indication: OVARIAN EPITHELIAL CANCER METASTATIC
     Route: 065
  5. CALCIUM FOLINATE [Suspect]
     Active Substance: LEUCOVORIN CALCIUM
     Indication: OVARIAN EPITHELIAL CANCER METASTATIC
     Route: 065
  6. CAELYX [Concomitant]
     Active Substance: DOXORUBICIN HYDROCHLORIDE
     Indication: OVARIAN EPITHELIAL CANCER METASTATIC
     Route: 065
  7. TAXOL [Suspect]
     Active Substance: PACLITAXEL
     Indication: OVARIAN EPITHELIAL CANCER METASTATIC
     Route: 065
  8. MEDROXYPROGESTERONE [Suspect]
     Active Substance: MEDROXYPROGESTERONE
     Indication: OVARIAN EPITHELIAL CANCER METASTATIC
     Route: 065
  9. IFOSFAMIDE. [Suspect]
     Active Substance: IFOSFAMIDE
     Indication: OVARIAN EPITHELIAL CANCER METASTATIC
     Route: 065
  10. CARBOPLATIN. [Suspect]
     Active Substance: CARBOPLATIN
     Indication: OVARIAN EPITHELIAL CANCER METASTATIC
     Route: 065
  11. EPIRUBICIN [Suspect]
     Active Substance: EPIRUBICIN
     Indication: OVARIAN EPITHELIAL CANCER METASTATIC
     Route: 065
  12. OXALIPLATIN. [Suspect]
     Active Substance: OXALIPLATIN
     Indication: OVARIAN EPITHELIAL CANCER METASTATIC
     Route: 065
  13. BEVACIZUMAB [Suspect]
     Active Substance: BEVACIZUMAB
     Indication: OVARIAN EPITHELIAL CANCER METASTATIC
     Route: 065
  14. CISPLATIN. [Suspect]
     Active Substance: CISPLATIN
     Indication: OVARIAN EPITHELIAL CANCER METASTATIC
     Route: 065
  15. 5-FLUOROURACIL [Suspect]
     Active Substance: FLUOROURACIL
     Indication: OVARIAN EPITHELIAL CANCER METASTATIC
     Route: 065

REACTIONS (14)
  - Metastases to lymph nodes [Unknown]
  - Drug effect incomplete [Unknown]
  - White blood cell count decreased [Unknown]
  - Neutropenia [Unknown]
  - Neuropathy peripheral [Unknown]
  - Off label use [Unknown]
  - Nausea [Unknown]
  - Diarrhoea [Unknown]
  - Abdominal pain [Unknown]
  - Ovarian cancer metastatic [Unknown]
  - Disease progression [Unknown]
  - Polyneuropathy [Unknown]
  - Platelet count decreased [Unknown]
  - Thrombocytopenic purpura [Unknown]
